FAERS Safety Report 4610253-2 (Version None)
Quarter: 2005Q2

REPORT INFORMATION
  Report Type: 
  Country: None (occurrence: None)
  Receive Date: 20050301
  Receipt Date: 20041103
  Transmission Date: 20051028
  Serious: No
  Sender: FDA-Public Use
  Company Number: WAES 0411USA00545

PATIENT
  Sex: Female

DRUGS (1)
  1. ZETIA [Suspect]
     Indication: BLOOD CHOLESTEROL INCREASED
     Dosage: PO
     Route: 048
     Dates: start: 20040703, end: 20041028

REACTIONS (5)
  - BLOOD CHOLESTEROL INCREASED [None]
  - DRY MOUTH [None]
  - DYSGEUSIA [None]
  - PARAESTHESIA ORAL [None]
  - TONGUE DISORDER [None]
